FAERS Safety Report 9924033 (Version 3)
Quarter: 2014Q2

REPORT INFORMATION
  Report Type: Spontaneous
  Country: DE (occurrence: DE)
  Receive Date: 20140225
  Receipt Date: 20140411
  Transmission Date: 20141212
  Serious: Yes (Death, Hospitalization)
  Sender: FDA-Public Use
  Company Number: DE-US-EMD SERONO, INC.-7270199

PATIENT
  Age: 73 Year
  Sex: Female

DRUGS (1)
  1. REBIF [Suspect]
     Indication: MULTIPLE SCLEROSIS
     Route: 058

REACTIONS (17)
  - Pneumonia [Fatal]
  - Hypoxia [Fatal]
  - Cardiac arrest [Fatal]
  - Renal failure acute [Fatal]
  - Thrombotic microangiopathy [Fatal]
  - Glomerulonephritis rapidly progressive [Fatal]
  - Urinary tract disorder [Fatal]
  - Bladder disorder [Fatal]
  - Asthma [Fatal]
  - Pancreatitis chronic [Fatal]
  - Multiple allergies [Fatal]
  - Hepatic cyst [Fatal]
  - Lactose intolerance [Fatal]
  - Blood test abnormal [Not Recovered/Not Resolved]
  - Insomnia [Not Recovered/Not Resolved]
  - Injection site pain [Not Recovered/Not Resolved]
  - Injection site inflammation [Not Recovered/Not Resolved]
